FAERS Safety Report 6235510-8 (Version None)
Quarter: 2009Q2

REPORT INFORMATION
  Report Type: 
  Country: None (occurrence: None)
  Receive Date: 20090618
  Receipt Date: 20080624
  Transmission Date: 20091009
  Serious: No
  Sender: FDA-Public Use
  Company Number: US-ASTRAZENECA-2008UW12711

PATIENT
  Age: 36 Year
  Sex: Female
  Weight: 92.1 kg

DRUGS (1)
  1. RHINOCORT [Suspect]
     Indication: MULTIPLE ALLERGIES
     Route: 045

REACTIONS (1)
  - HEADACHE [None]
